FAERS Safety Report 8246390 (Version 9)
Quarter: 2013Q2

REPORT INFORMATION
  Report Type: Spontaneous
  Country: DK (occurrence: DK)
  Receive Date: 20111116
  Receipt Date: 20130628
  Transmission Date: 20140414
  Serious: Yes (Hospitalization)
  Sender: FDA-Public Use
  Company Number: DK-AMGEN-DNKSP2011059207

PATIENT
  Age: 62 Year
  Sex: Male
  Weight: 108 kg

DRUGS (13)
  1. FILGRASTIM [Suspect]
     Indication: DIFFUSE LARGE B-CELL LYMPHOMA
     Dosage: 6 MG, UNK
     Route: 058
     Dates: start: 20111017
  2. INNOHEP [Suspect]
     Indication: THROMBOSIS PROPHYLAXIS
     Dosage: 18000 IU, UNK
     Route: 058
     Dates: start: 20111103
  3. INNOHEP [Suspect]
     Dosage: 18000 IE, UNK
     Route: 058
     Dates: start: 20111103
  4. PREDNISONE [Concomitant]
     Indication: DIFFUSE LARGE B-CELL LYMPHOMA
     Dosage: 100 MG, UNK
     Route: 048
     Dates: start: 20111014
  5. RITUXIMAB [Concomitant]
     Indication: DIFFUSE LARGE B-CELL LYMPHOMA
     Dosage: 750 MG, UNK
     Route: 042
     Dates: start: 20111014
  6. RITUXIMAB [Concomitant]
     Dosage: UNK
     Route: 042
     Dates: start: 20111103
  7. CYCLOPHOSPHAMIDE [Concomitant]
     Indication: DIFFUSE LARGE B-CELL LYMPHOMA
     Dosage: 1800 MG, UNK
     Route: 042
     Dates: start: 20111014
  8. CYCLOPHOSPHAMIDE [Concomitant]
     Dosage: UNK
     Route: 042
     Dates: start: 20111103
  9. DOXORUBICIN [Concomitant]
     Indication: DIFFUSE LARGE B-CELL LYMPHOMA
     Dosage: 117 MG, UNK
     Route: 042
     Dates: start: 20111014
  10. DOXORUBICIN [Concomitant]
     Dosage: UNK
     Route: 042
     Dates: start: 20111103
  11. DOXORUBICIN [Concomitant]
     Dosage: 117 MG, UNK
     Route: 042
     Dates: start: 20111113
  12. VINCRISTINE [Concomitant]
     Indication: DIFFUSE LARGE B-CELL LYMPHOMA
     Dosage: 2 G, UNK
     Route: 042
     Dates: start: 20111014
  13. VINCRISTINE [Concomitant]
     Dosage: UNK
     Route: 042
     Dates: start: 20111103

REACTIONS (1)
  - Thrombosis [Recovered/Resolved]
